FAERS Safety Report 14032572 (Version 14)
Quarter: 2018Q2

REPORT INFORMATION
  Report Type: Spontaneous
  Country: JP (occurrence: JP)
  Receive Date: 20171002
  Receipt Date: 20180615
  Transmission Date: 20180711
  Serious: Yes (Life-Threatening, Hospitalization, Other)
  Sender: FDA-Public Use
  Company Number: JP-OTSUKA-2017_021168

PATIENT
  Age: 37 Year
  Sex: Female
  Weight: 50 kg

DRUGS (6)
  1. SAMSCA [Suspect]
     Active Substance: TOLVAPTAN
     Indication: CONGENITAL CYSTIC KIDNEY DISEASE
     Dosage: 45 MG/DAY, DIVIDED 2 DOSES (EACH DOSE UNKNOWN)
     Route: 048
     Dates: start: 20170815, end: 20170828
  2. SAMSCA [Suspect]
     Active Substance: TOLVAPTAN
     Dosage: 60 MG/DAY, DIVIDED 2 DOSES (EACH DOSE UNKNOWN)
     Route: 048
     Dates: start: 20170613, end: 20170814
  3. SAMSCA [Suspect]
     Active Substance: TOLVAPTAN
     Dosage: 22.5MG/DAY, DIVIDED 2 DOSES (EACH DOSE UNKNOWN)
     Route: 048
     Dates: start: 20170310, end: 20170403
  4. SAMSCA [Suspect]
     Active Substance: TOLVAPTAN
     Dosage: 15 MG/DAY,DIVIDED 2 DOSES (EACH DOSE UNKNOWN) AFTER MEAL IN THE MORNING AND DINNER
     Route: 048
     Dates: start: 20170303, end: 20170309
  5. SAMSCA [Suspect]
     Active Substance: TOLVAPTAN
     Dosage: 30 MG/DAY, DIVIDED 2 DOSES (EACH DOSE UNKNOWN)
     Route: 048
     Dates: start: 20170404, end: 20170508
  6. SAMSCA [Suspect]
     Active Substance: TOLVAPTAN
     Dosage: 45 MG/DAY, DIVIDED 2 DOSES (EACH DOSE UNKNOWN)
     Route: 048
     Dates: start: 20170509, end: 20170612

REACTIONS (4)
  - Liver function test increased [Unknown]
  - Liver disorder [Unknown]
  - Acute hepatic failure [Recovering/Resolving]
  - Liver function test increased [Unknown]

NARRATIVE: CASE EVENT DATE: 20170814
